FAERS Safety Report 4609830-4 (Version None)
Quarter: 2005Q1

REPORT INFORMATION
  Report Type: 
  Country: None (occurrence: None)
  Receive Date: 20050310
  Receipt Date: 20050222
  Transmission Date: 20050727
  Serious: Yes (Other)
  Sender: FDA-Public Use
  Company Number: 200410427BBE

PATIENT
  Sex: Male

DRUGS (3)
  1. HYPRHO-D [Suspect]
  2. INJECTABLE GLOBULIN (JOHNSON AND JOHNSON) (IMMUNOGLOBULIN HUMAN NORMAL [Suspect]
  3. INJECTABLE GLOBULIN (ORTHOCLININCAL DIAGNOSTICS) (IMMUNOGLOBULIN HUMAN [Suspect]

REACTIONS (3)
  - DRUG EXPOSURE DURING PREGNANCY [None]
  - METAL POISONING [None]
  - NEUROTOXICITY [None]
